FAERS Safety Report 6809128-X (Version None)
Quarter: 2010Q2

REPORT INFORMATION
  Report Type: 
  Country: None (occurrence: None)
  Receive Date: 20100630
  Receipt Date: 20100621
  Transmission Date: 20101027
  Serious: No
  Sender: FDA-Public Use
  Company Number: US-BIOGENIDEC-2010BI021522

PATIENT
  Age: 34 Year
  Sex: Female

DRUGS (3)
  1. TYSABRI [Suspect]
     Indication: MULTIPLE SCLEROSIS
     Route: 042
     Dates: start: 20050214, end: 20050101
  2. TYSABRI [Suspect]
     Route: 042
     Dates: start: 20080122, end: 20081223
  3. TYSABRI [Suspect]
     Route: 042
     Dates: start: 20090520

REACTIONS (1)
  - VEIN DISORDER [None]
